FAERS Safety Report 8695755 (Version 2)
Quarter: 2012Q4

REPORT INFORMATION
  Report Type: 
  Country: US (occurrence: US)
  Receive Date: 20120731
  Receipt Date: 20120828
  Transmission Date: 20130627
  Serious: Yes (Disabling, Other)
  Sender: FDA-Public Use
  Company Number: US-009507513-1207USA009823

PATIENT

DRUGS (19)
  1. ZOCOR [Suspect]
     Dosage: 40 mg, qd
     Route: 048
  2. ATENOLOL [Suspect]
     Dosage: 25 mg, qd
     Route: 048
  3. LOMOTIL [Suspect]
     Dosage: 2.5 mg, qid
     Route: 048
  4. NORVASC [Suspect]
     Route: 048
  5. NITROSTAT [Suspect]
     Dosage: 0.4 mg, prn
  6. DILANTIN [Suspect]
     Dosage: 300 mg, bid
     Route: 048
  7. METHOCARBAMOL [Suspect]
     Dosage: 750 mg, prn
     Route: 048
  8. ISOSORBIDE MONONITRATE [Suspect]
     Dosage: 30 mg, tid
     Route: 048
  9. K-DUR [Suspect]
     Dosage: 8 mEq, UNK
  10. ASPIRIN [Suspect]
     Dosage: 81 mg, prn
     Route: 048
  11. LACTULOSE [Suspect]
     Dosage: 30 mg, prn
  12. DEPAKOTE [Suspect]
     Dosage: 500 mg, bid
     Route: 048
  13. HUMULIN R [Suspect]
     Dosage: 24 DF, tid
  14. FUROSEMIDE [Suspect]
     Dosage: 40 mg, bid
     Route: 048
  15. LANTUS [Suspect]
     Dosage: 170 DF, qd
  16. TYLENOL WITH CODEINE [Suspect]
     Dosage: UNK, qd
  17. ZANTAC [Suspect]
     Dosage: 300 mg, tid
  18. REMERON [Suspect]
     Dosage: 30 mg, qd
     Route: 048
  19. ATIVAN [Suspect]
     Dosage: 1 mg, tid
     Route: 048

REACTIONS (6)
  - Chronic obstructive pulmonary disease [Unknown]
  - Lung disorder [Unknown]
  - Amnesia [Unknown]
  - Product quality issue [Unknown]
  - Emphysema [Unknown]
  - Bedridden [Unknown]
